FAERS Safety Report 8778995 (Version 2)
Quarter: 2013Q1

REPORT INFORMATION
  Report Type: Spontaneous
  Country: FR (occurrence: FR)
  Receive Date: 20120912
  Receipt Date: 20130212
  Transmission Date: 20140127
  Serious: Yes (Hospitalization, Other)
  Sender: FDA-Public Use
  Company Number: FR-PFIZER INC-2012220814

PATIENT
  Age: 15 Year
  Sex: Male

DRUGS (6)
  1. ADVIL [Suspect]
     Indication: HYPERTHERMIA
     Dosage: 400 MG, SINGLE
     Route: 048
     Dates: start: 20120722, end: 20120722
  2. CURACNE [Suspect]
     Indication: ACNE
     Dosage: 10 MG, DAILY
     Route: 048
     Dates: start: 20120714
  3. CURACNE [Suspect]
     Dosage: 20 MG, DAILY
     Dates: start: 20120717, end: 20120722
  4. PARACETAMOL [Suspect]
     Indication: HYPERTHERMIA
     Dosage: 1 G, TWICE PER DAY AS NEEDED
     Route: 048
     Dates: start: 20120722, end: 20120722
  5. SOLUPRED [Concomitant]
     Dosage: 40MG PER DAY
     Dates: start: 20120714, end: 20120717
  6. SOLUPRED [Concomitant]
     Dosage: 30MG PER DAY
     Dates: start: 20120717

REACTIONS (2)
  - Transaminases increased [Recovering/Resolving]
  - Gamma-glutamyltransferase increased [Recovering/Resolving]
